FAERS Safety Report 25982238 (Version 1)
Quarter: 2025Q4

REPORT INFORMATION
  Report Type: Report from Study
  Country: CA (occurrence: CA)
  Receive Date: 20251031
  Receipt Date: 20251031
  Transmission Date: 20260118
  Serious: Yes (Life-Threatening, Hospitalization, Other)
  Sender: ROCHE
  Company Number: CA-ROCHE-10000392125

PATIENT
  Age: 29 Year
  Sex: Female

DRUGS (2)
  1. OCREVUS [Suspect]
     Active Substance: OCRELIZUMAB
     Indication: Relapsing-remitting multiple sclerosis
     Dosage: MORE DOSAGE INFORMATION IS 300 MG AT DAY 0 AND 14, THEN 600 MG EVERY 6 MONTHS
     Route: 042
     Dates: start: 20190605
  2. OCREVUS [Suspect]
     Active Substance: OCRELIZUMAB
     Route: 042

REACTIONS (13)
  - Myocarditis [Recovering/Resolving]
  - Colitis [Unknown]
  - White blood cell count increased [Unknown]
  - Anxiety [Unknown]
  - Maternal exposure before pregnancy [Unknown]
  - Chest pain [Unknown]
  - Human rhinovirus test positive [Unknown]
  - Abortion spontaneous [Unknown]
  - Viral myocarditis [Unknown]
  - Irritable bowel syndrome [Unknown]
  - Troponin increased [Unknown]
  - Enterovirus test positive [Unknown]
  - Enterovirus myocarditis [Unknown]

NARRATIVE: CASE EVENT DATE: 20250818
